FAERS Safety Report 17839327 (Version 5)
Quarter: 2025Q2

REPORT INFORMATION
  Report Type: Spontaneous
  Country: JP (occurrence: JP)
  Receive Date: 20200529
  Receipt Date: 20250410
  Transmission Date: 20250716
  Serious: Yes (Death, Life-Threatening, Hospitalization, Other)
  Sender: AUROBINDO
  Company Number: JP-AUROBINDO-AUR-APL-2020-026369

PATIENT
  Age: 71 Year
  Sex: Male

DRUGS (16)
  1. FOLOTYN [Suspect]
     Active Substance: PRALATREXATE
     Indication: Peripheral T-cell lymphoma unspecified
     Route: 042
     Dates: start: 20190710, end: 20190710
  2. FOLOTYN [Suspect]
     Active Substance: PRALATREXATE
     Route: 042
     Dates: start: 20190722, end: 20190805
  3. FOLOTYN [Suspect]
     Active Substance: PRALATREXATE
     Route: 042
     Dates: start: 20190729
  4. FOLOTYN [Suspect]
     Active Substance: PRALATREXATE
     Route: 042
     Dates: start: 20190805
  5. FOLOTYN [Suspect]
     Active Substance: PRALATREXATE
     Route: 042
     Dates: start: 20190820, end: 20190820
  6. FOLOTYN [Suspect]
     Active Substance: PRALATREXATE
     Route: 042
     Dates: start: 20190906, end: 20190906
  7. FOLOTYN [Suspect]
     Active Substance: PRALATREXATE
     Route: 042
     Dates: start: 20190917, end: 20191015
  8. FOLOTYN [Suspect]
     Active Substance: PRALATREXATE
     Route: 042
     Dates: start: 20190924
  9. FOLOTYN [Suspect]
     Active Substance: PRALATREXATE
     Route: 042
     Dates: start: 20191001
  10. FOLOTYN [Suspect]
     Active Substance: PRALATREXATE
     Route: 042
     Dates: start: 20191008
  11. FOLOTYN [Suspect]
     Active Substance: PRALATREXATE
     Route: 042
     Dates: start: 20191015
  12. FOLOTYN [Suspect]
     Active Substance: PRALATREXATE
     Route: 042
     Dates: start: 20191029, end: 20191105
  13. FOLOTYN [Suspect]
     Active Substance: PRALATREXATE
     Route: 042
     Dates: start: 20191105
  14. LEUCOVORIN [Concomitant]
     Active Substance: LEUCOVORIN\LEUCOVORIN CALCIUM
     Indication: Product used for unknown indication
     Route: 065
  15. TARGRETIN [Concomitant]
     Active Substance: BEXAROTENE
     Indication: Product used for unknown indication
     Route: 065
     Dates: start: 201811
  16. TARGRETIN [Concomitant]
     Active Substance: BEXAROTENE
     Route: 065
     Dates: start: 20190105

REACTIONS (8)
  - Death [Fatal]
  - Thrombocytopenia [Unknown]
  - Platelet count decreased [Recovering/Resolving]
  - Neutropenia [Unknown]
  - Malignant neoplasm progression [Unknown]
  - Neutrophil count decreased [Recovering/Resolving]
  - Stomatitis [Unknown]
  - Hepatic function abnormal [Recovered/Resolved]

NARRATIVE: CASE EVENT DATE: 20190824
